FAERS Safety Report 10078998 (Version 1)
Quarter: 2014Q2

REPORT INFORMATION
  Report Type: Spontaneous
  Country: US (occurrence: None)
  Receive Date: 20140411
  Receipt Date: 20140411
  Transmission Date: 20141212
  Serious: Yes (Disabling)
  Sender: FDA-Public Use
  Company Number: None

PATIENT
  Age: 32 Year
  Sex: Female
  Weight: 88.45 kg

DRUGS (1)
  1. CHANTIX [Suspect]
     Indication: SMOKING CESSATION THERAPY
     Dosage: 1 PILL TWICE DAILY TAKEN BY MOUTH
     Route: 048
     Dates: start: 20140306, end: 20140408

REACTIONS (8)
  - Abnormal dreams [None]
  - Muscle twitching [None]
  - Anger [None]
  - Crying [None]
  - Lip swelling [None]
  - Abnormal dreams [None]
  - Disturbance in attention [None]
  - Suicidal ideation [None]
